FAERS Safety Report 7776582-9 (Version None)
Quarter: 2011Q3

REPORT INFORMATION
  Report Type: 
  Country: None (occurrence: None)
  Receive Date: 20110922
  Receipt Date: 20110922
  Transmission Date: 20111222
  Serious: Yes (Other)
  Sender: FDA-Public Use
  Company Number: None

PATIENT
  Sex: Female

DRUGS (2)
  1. LANTUS [Suspect]
     Indication: DIABETES MELLITUS
     Dosage: INJECT 58 UNITS DAILY
     Dates: start: 20100501
  2. GLIMEPIRIDE [Concomitant]

REACTIONS (2)
  - DEVICE FAILURE [None]
  - BLOOD GLUCOSE INCREASED [None]
